FAERS Safety Report 25792296 (Version 2)
Quarter: 2025Q3

REPORT INFORMATION
  Report Type: Spontaneous
  Country: US (occurrence: US)
  Receive Date: 20250911
  Receipt Date: 20250916
  Transmission Date: 20251021
  Serious: Yes (Other)
  Sender: PFIZER
  Company Number: US-PFIZER INC-202500177714

PATIENT
  Sex: Male

DRUGS (4)
  1. BRAFTOVI [Suspect]
     Active Substance: ENCORAFENIB
     Indication: Anaplastic thyroid cancer
  2. BRAFTOVI [Suspect]
     Active Substance: ENCORAFENIB
     Indication: BRAF gene mutation
  3. MEKTOVI [Suspect]
     Active Substance: BINIMETINIB
     Indication: BRAF gene mutation
  4. MEKTOVI [Suspect]
     Active Substance: BINIMETINIB
     Indication: Anaplastic thyroid cancer

REACTIONS (4)
  - Optic neuritis [Unknown]
  - Optic nerve injury [Unknown]
  - Visual impairment [Not Recovered/Not Resolved]
  - Off label use [Unknown]
